FAERS Safety Report 9162606 (Version 1)
Quarter: 2013Q1

REPORT INFORMATION
  Report Type: Spontaneous
  Country: FR (occurrence: FR)
  Receive Date: 20130314
  Receipt Date: 20130314
  Transmission Date: 20140127
  Serious: Yes (Hospitalization)
  Sender: FDA-Public Use
  Company Number: FR-SANOFI-AVENTIS-2013SA022392

PATIENT
  Age: 81 Year
  Sex: Female

DRUGS (14)
  1. KAYEXALATE [Suspect]
     Indication: PRODUCT USED FOR UNKNOWN INDICATION
     Dosage: DOSE + DAILY DOSE: 1 MEASURE-SPOON DAILY
     Route: 048
     Dates: start: 20130213, end: 20130216
  2. OFLOXACIN [Suspect]
     Indication: PRODUCT USED FOR UNKNOWN INDICATION
     Dosage: STRENGTH: 200 MG, TABFIL
     Route: 048
     Dates: start: 20130216, end: 20130216
  3. POLARAMINE [Suspect]
     Indication: PRODUCT USED FOR UNKNOWN INDICATION
     Dosage: STRENGTH: 5 MG/ML
     Route: 042
     Dates: start: 20130215, end: 20130215
  4. ATENOLOL [Concomitant]
  5. INEXIUM [Concomitant]
  6. PAROXETINE [Concomitant]
  7. INEGY [Concomitant]
  8. BROMAZEPAM [Concomitant]
  9. FUROSEMIDE [Concomitant]
  10. SPASFON [Concomitant]
  11. ZOLPIDEM [Concomitant]
  12. METOCLOPRAMIDE [Concomitant]
  13. PERFALGAN [Concomitant]
  14. PLATELETS, HUMAN BLOOD [Concomitant]

REACTIONS (1)
  - Rash maculo-papular [Recovered/Resolved]
